FAERS Safety Report 11855218 (Version 1)
Quarter: 2015Q4

REPORT INFORMATION
  Report Type: Spontaneous
  Country: US (occurrence: US)
  Receive Date: 20151221
  Receipt Date: 20151221
  Transmission Date: 20160305
  Serious: No
  Sender: FDA-Public Use
  Company Number: US-TEVA-614524USA

PATIENT
  Age: 6 Year
  Sex: Male
  Weight: 19 kg

DRUGS (1)
  1. METRONIDAZOLE. [Suspect]
     Active Substance: METRONIDAZOLE

REACTIONS (1)
  - Rash pruritic [Unknown]
